FAERS Safety Report 6487181-3 (Version None)
Quarter: 2009Q4

REPORT INFORMATION
  Report Type: 
  Country: None (occurrence: None)
  Receive Date: 20091210
  Receipt Date: 20090806
  Transmission Date: 20100525
  Serious: No
  Sender: FDA-Public Use
  Company Number: US-AMGEN-KDL359112

PATIENT
  Sex: Female

DRUGS (1)
  1. ENBREL [Suspect]
     Indication: PSORIATIC ARTHROPATHY
     Route: 058
     Dates: start: 20080401

REACTIONS (7)
  - ABDOMINAL DISCOMFORT [None]
  - DRY EYE [None]
  - MALAISE [None]
  - PYREXIA [None]
  - SUPERFICIAL INJURY OF EYE [None]
  - TENDON PAIN [None]
  - VISION BLURRED [None]
